FAERS Safety Report 8111063-4 (Version None)
Quarter: 2012Q1

REPORT INFORMATION
  Report Type: 
  Country: None (occurrence: None)
  Receive Date: 20120203
  Receipt Date: 20110324
  Transmission Date: 20120608
  Serious: No
  Sender: FDA-Public Use
  Company Number: US-GLAXOSMITHKLINE-A0919838A

PATIENT
  Sex: Male

DRUGS (1)
  1. LAMICTAL [Suspect]
     Dosage: 250MG SINGLE DOSE
     Route: 048

REACTIONS (2)
  - WRONG DRUG ADMINISTERED [None]
  - ACCIDENTAL EXPOSURE [None]
